FAERS Safety Report 6097034-0 (Version None)
Quarter: 2009Q1

REPORT INFORMATION
  Report Type: 
  Country: None (occurrence: None)
  Receive Date: 20090227
  Receipt Date: 20090219
  Transmission Date: 20090719
  Serious: Yes (Other)
  Sender: FDA-Public Use
  Company Number: PHHY2009BR02112

PATIENT
  Sex: Male

DRUGS (1)
  1. RITALIN [Suspect]
     Dosage: 10 MG, UNK
     Route: 048

REACTIONS (4)
  - AGGRESSION [None]
  - COLD SWEAT [None]
  - DRUG DEPENDENCE [None]
  - INCORRECT DOSE ADMINISTERED [None]
